FAERS Safety Report 5312861-2 (Version None)
Quarter: 2007Q1

REPORT INFORMATION
  Report Type: 
  Country: None (occurrence: None)
  Receive Date: 20070201
  Receipt Date: 20061031
  Transmission Date: 20070707
  Serious: No
  Sender: FDA-Public Use
  Company Number: 256909

PATIENT
  Age: 66 Year
  Sex: Female
  Weight: 81.6 kg

DRUGS (2)
  1. LEVEMIR [Suspect]
     Indication: INSULIN-REQUIRING TYPE II DIABETES MELLITUS
     Dosage: 10 IU,QD, SUBCUTANEOUS
     Route: 058
     Dates: start: 20060821, end: 20060906
  2. GLYBURIDE (GLIBLENCLAMIDE) [Concomitant]

REACTIONS (3)
  - CHEST DISCOMFORT [None]
  - RASH [None]
  - URTICARIA [None]
